FAERS Safety Report 25374693 (Version 1)
Quarter: 2025Q2

REPORT INFORMATION
  Report Type: Spontaneous
  Country: US (occurrence: US)
  Receive Date: 20250529
  Receipt Date: 20250529
  Transmission Date: 20250716
  Serious: No
  Sender: BAYER HEALTHCARE PHARMACEUTICALS INC.
  Company Number: US-BAYER-2025A071508

PATIENT
  Sex: Female

DRUGS (9)
  1. MIRENA [Suspect]
     Active Substance: LEVONORGESTREL
     Indication: Intra-uterine contraceptive device insertion
     Dosage: 20?G/DAY
     Route: 015
     Dates: start: 201612
  2. MIRENA [Suspect]
     Active Substance: LEVONORGESTREL
     Indication: Infertility
  3. GANIRELIX ACETATE [Concomitant]
     Active Substance: GANIRELIX ACETATE
  4. CETRORELIX ACETATE [Concomitant]
     Active Substance: CETRORELIX ACETATE
  5. CABERGOLINE [Concomitant]
     Active Substance: CABERGOLINE
  6. PREGNYL [Concomitant]
     Active Substance: CHORIOGONADOTROPIN ALFA
  7. FOLLISTIM AQ [Concomitant]
     Active Substance: FOLLITROPIN
  8. Leuprolide acetato [Concomitant]
  9. MENOPUR [Concomitant]
     Active Substance: FOLLITROPIN\LUTEINIZING HORMONE

REACTIONS (2)
  - Vulvovaginal discomfort [None]
  - Device use issue [None]

NARRATIVE: CASE EVENT DATE: 20250101
